FAERS Safety Report 20197072 (Version 1)
Quarter: 2021Q4

REPORT INFORMATION
  Report Type: Spontaneous
  Country: DE (occurrence: DE)
  Receive Date: 20211217
  Receipt Date: 20211217
  Transmission Date: 20220303
  Serious: Yes (Death, Hospitalization)
  Sender: FDA-Public Use
  Company Number: DE-ALKEM LABORATORIES LIMITED-DE-ALKEM-2021-07491

PATIENT
  Age: 83 Year
  Sex: Male
  Weight: 76 kg

DRUGS (4)
  1. PREGABALIN [Suspect]
     Active Substance: PREGABALIN
     Indication: Squamous cell carcinoma of skin
     Dosage: UNK
     Route: 065
     Dates: start: 20210914
  2. CEMIPLIMAB [Suspect]
     Active Substance: CEMIPLIMAB
     Indication: Squamous cell carcinoma of skin
     Dosage: 350 MILLIGRAM, EVERY 3 WEEKS
     Route: 042
     Dates: start: 20210816, end: 20210816
  3. CLINDAMYCIN HYDROCHLORIDE [Suspect]
     Active Substance: CLINDAMYCIN HYDROCHLORIDE
     Indication: Squamous cell carcinoma of skin
     Dosage: UNK
     Route: 065
     Dates: start: 20210924
  4. HYDROMORPHONE HYDROCHLORIDE [Suspect]
     Active Substance: HYDROMORPHONE HYDROCHLORIDE
     Indication: Squamous cell carcinoma of skin
     Dosage: UNK
     Route: 065
     Dates: start: 20210914

REACTIONS (1)
  - Neuralgia [Fatal]

NARRATIVE: CASE EVENT DATE: 20211021
